FAERS Safety Report 12731875 (Version 1)
Quarter: 2016Q3

REPORT INFORMATION
  Report Type: Spontaneous
  Country: US (occurrence: US)
  Receive Date: 20160912
  Receipt Date: 20160912
  Transmission Date: 20161109
  Serious: Yes (Disabling, Other)
  Sender: FDA-Public Use
  Company Number: None

PATIENT
  Sex: Male
  Weight: 100.7 kg

DRUGS (1)
  1. ATENOLOL. [Suspect]
     Active Substance: ATENOLOL
     Indication: HEART RATE DECREASED
     Dosage: 1 PILL 1 X DAILY MOUTH
     Route: 048

REACTIONS (3)
  - Muscle spasms [None]
  - Decreased appetite [None]
  - Urinary incontinence [None]

NARRATIVE: CASE EVENT DATE: 20130926
